FAERS Safety Report 8420402-6 (Version None)
Quarter: 2012Q2

REPORT INFORMATION
  Report Type: 
  Country: None (occurrence: None)
  Receive Date: 20120607
  Receipt Date: 20120601
  Transmission Date: 20120825
  Serious: Yes (Hospitalization)
  Sender: FDA-Public Use
  Company Number: FR-MERCK-1206FRA00004

PATIENT
  Age: 62 Year
  Sex: Female
  Weight: 48 kg

DRUGS (4)
  1. FLUTICASONE PROPIONATE AND SALMETEROL XINAFOATE [Concomitant]
     Route: 055
  2. DICLOFENAC EPOLAMINE [Suspect]
     Route: 061
     Dates: start: 20110101, end: 20120401
  3. SINGULAIR [Suspect]
     Route: 048
     Dates: start: 20110101, end: 20120101
  4. ESOMEPRAZOLE MAGNESIUM [Suspect]
     Route: 065
     Dates: start: 20111101, end: 20120412

REACTIONS (1)
  - EOSINOPHILIC FASCIITIS [None]
